FAERS Safety Report 16275400 (Version 1)
Quarter: 2019Q2

REPORT INFORMATION
  Report Type: Spontaneous
  Country: VE (occurrence: VE)
  Receive Date: 20190504
  Receipt Date: 20190504
  Transmission Date: 20190711
  Serious: Yes (Other)
  Sender: FDA-Public Use
  Company Number: PHHY2019VE099741

PATIENT
  Sex: Male

DRUGS (1)
  1. GLIVEC [Suspect]
     Active Substance: IMATINIB MESYLATE
     Indication: CHRONIC MYELOID LEUKAEMIA
     Dosage: 400 MG, UNK (4 TABLETS)
     Route: 065

REACTIONS (7)
  - Scab [Unknown]
  - Pyrexia [Unknown]
  - Discharge [Unknown]
  - Bone pain [Unknown]
  - Discomfort [Unknown]
  - Burning sensation [Unknown]
  - Malaise [Unknown]
